FAERS Safety Report 24593791 (Version 2)
Quarter: 2024Q4

REPORT INFORMATION
  Report Type: Spontaneous
  Country: US (occurrence: US)
  Receive Date: 20241108
  Receipt Date: 20241112
  Transmission Date: 20250114
  Serious: Yes (Other)
  Sender: MEITHEAL PHARMACEUTICALS
  Company Number: US-MEITHEAL-2024MPSPO00309

PATIENT
  Age: 40 Year
  Sex: Female

DRUGS (2)
  1. GANIRELIX [Suspect]
     Active Substance: GANIRELIX
     Indication: Infertility
     Route: 065
     Dates: start: 20241002, end: 20241002
  2. OMNITROPE [Concomitant]
     Active Substance: SOMATROPIN
     Indication: Product used for unknown indication
     Route: 065
     Dates: start: 20241002

REACTIONS (7)
  - Myocardial infarction [Recovered/Resolved]
  - Abdominal distension [Unknown]
  - Chest discomfort [Unknown]
  - Dyspnoea [Unknown]
  - Restlessness [Unknown]
  - Headache [Unknown]
  - Abdominal pain upper [Unknown]

NARRATIVE: CASE EVENT DATE: 20241002
